FAERS Safety Report 13393535 (Version 1)
Quarter: 2017Q1

REPORT INFORMATION
  Report Type: Spontaneous
  Country: US (occurrence: US)
  Receive Date: 20170331
  Receipt Date: 20170331
  Transmission Date: 20170429
  Serious: No
  Sender: FDA-Public Use
  Company Number: US-SEPTODONT-201603766

PATIENT
  Age: 16 Year
  Sex: Female

DRUGS (5)
  1. CARBOCAINE [Concomitant]
     Active Substance: MEPIVACAINE HYDROCHLORIDE
     Indication: LOCAL ANAESTHESIA
     Dosage: INFILTRATION ON TOOTH #3 WITH 27G NEEDLE
     Route: 004
     Dates: start: 20161129, end: 20161129
  2. LIDOCAINE HYDROCHLORIDE 2% WITH EPINEPHRINE 1:100,000 INJECTION [Suspect]
     Active Substance: EPINEPHRINE\LIDOCAINE HYDROCHLORIDE
     Indication: LOCAL ANAESTHESIA
     Dosage: INFILTRATION ON TOOTH #3 WITH 27G NEEDLE. 2 CARPULES ADMINISTERED OF DRUG #1, DRUG #2 AND/OR DRUG #3
     Route: 004
     Dates: start: 20161129, end: 20161129
  3. LIDOCAINE HYDROCHLORIDE 2% WITH EPINEPHRINE 1:100,000 INJECTION [Suspect]
     Active Substance: EPINEPHRINE\LIDOCAINE HYDROCHLORIDE
     Indication: LOCAL ANAESTHESIA
     Dosage: INFILTRATION ON TOOTH #3 WITH 27G NEEDLE. 2 CARPULES ADMINISTERED OF DRUG #1, DRUG #2 AND/OR DRUG #3
     Route: 004
     Dates: start: 20161129, end: 20161129
  4. BENZO-JEL 220 MG/G GEL, DENTIFRICE [Concomitant]
     Dates: start: 20161129, end: 20161129
  5. LIDOCAINE HYDROCHLORIDE 2% WITH EPINEPHRINE 1:100,000 INJECTION [Suspect]
     Active Substance: EPINEPHRINE\LIDOCAINE HYDROCHLORIDE
     Indication: LOCAL ANAESTHESIA
     Dosage: INFILTRATION ON TOOTH #3 WITH 27G NEEDLE. 2 CARPULES ADMINISTERED OF DRUG #1, DRUG #2 AND/OR DRUG #3
     Route: 004
     Dates: start: 20161129, end: 20161129

REACTIONS (1)
  - Drug ineffective [Unknown]

NARRATIVE: CASE EVENT DATE: 20161129
